FAERS Safety Report 9340060 (Version 5)
Quarter: 2014Q1

REPORT INFORMATION
  Report Type: Report from Study
  Country: GB (occurrence: GB)
  Receive Date: 20130610
  Receipt Date: 20140125
  Transmission Date: 20141002
  Serious: Yes (Other)
  Sender: FDA-Public Use
  Company Number: GB-VERTEX PHARMACEUTICALS INC-2013-006853

PATIENT
  Age: 61 Year
  Sex: Female

DRUGS (6)
  1. VX-950 (TELAPREVIR) [Suspect]
     Indication: HEPATITIS C
     Dosage: 1125 MG, BID
     Route: 048
     Dates: start: 20130601
  2. DILTIAZEM [Interacting]
     Indication: HYPERTENSION
     Dosage: 120 MG, UNK
     Route: 048
  3. DILTIAZEM [Interacting]
     Dosage: 240 MG, UNK
     Route: 048
     Dates: start: 20130531
  4. RIBAVIRIN [Suspect]
     Indication: HEPATITIS C
     Dosage: UNK, BID
     Route: 048
     Dates: start: 20130601
  5. PEGINTERFERON ALFA [Suspect]
     Indication: HEPATITIS C
     Dosage: UNK, QW
     Route: 058
     Dates: start: 20130601
  6. RAMIPRIL [Concomitant]
     Indication: HYPERTENSION
     Dosage: 10 MG, QD
     Route: 048

REACTIONS (11)
  - Blood pressure increased [Unknown]
  - Irritability [Not Recovered/Not Resolved]
  - Influenza like illness [Not Recovered/Not Resolved]
  - Anxiety [Recovered/Resolved]
  - White blood cell count decreased [Not Recovered/Not Resolved]
  - Aggression [Not Recovered/Not Resolved]
  - Tearfulness [Not Recovered/Not Resolved]
  - Proctalgia [Recovered/Resolved]
  - Pruritus [Not Recovered/Not Resolved]
  - Nausea [Not Recovered/Not Resolved]
  - Drug interaction [Not Recovered/Not Resolved]
